FAERS Safety Report 25247702 (Version 2)
Quarter: 2025Q2

REPORT INFORMATION
  Report Type: Report from Study
  Country: FR (occurrence: FR)
  Receive Date: 20250428
  Receipt Date: 20250605
  Transmission Date: 20250716
  Serious: Yes (Congenital Anomaly)
  Sender: ABBVIE
  Company Number: FR-GILEAD-2025-0710566

PATIENT

DRUGS (2)
  1. LOPINAVIR AND RITONAVIR [Suspect]
     Active Substance: LOPINAVIR\RITONAVIR
     Indication: Maternal exposure timing unspecified
     Route: 064
  2. EMTRICITABINE\TENOFOVIR DISOPROXIL FUMARATE [Suspect]
     Active Substance: EMTRICITABINE\TENOFOVIR DISOPROXIL FUMARATE
     Indication: Maternal exposure timing unspecified

REACTIONS (2)
  - Neurodevelopmental disorder [Unknown]
  - Foetal exposure during pregnancy [Unknown]
